FAERS Safety Report 4547716-4 (Version None)
Quarter: 2005Q1

REPORT INFORMATION
  Report Type: 
  Country: None (occurrence: None)
  Receive Date: 20050107
  Receipt Date: 20050103
  Transmission Date: 20050727
  Serious: Yes (Hospitalization)
  Sender: FDA-Public Use
  Company Number: FR-MERCK-0501FRA00007

PATIENT
  Age: 69 Year
  Sex: Female

DRUGS (13)
  1. FOSAMAX [Suspect]
     Route: 048
     Dates: start: 20011115, end: 20041203
  2. FLUINDIONE [Suspect]
     Route: 048
     Dates: start: 19990615, end: 20041203
  3. COLCHICINE [Concomitant]
     Route: 048
     Dates: start: 20041015
  4. ANTHOCYANINS (UNSPECIFIED) [Concomitant]
     Route: 048
  5. TRIMETAZIDINE [Concomitant]
     Route: 048
  6. ACEPROMAZINE AND ACEPROMETAZINE AND CLORAZEPATE DIPOTASSIUM [Concomitant]
     Route: 048
  7. CLORAZEPATE DIPOTASSIUM [Concomitant]
     Route: 048
  8. NAFRONYL OXALATE [Concomitant]
     Route: 048
  9. CALCIUM CARBONATE AND CHOLECALCIFEROL [Concomitant]
     Route: 048
  10. FERROUS SULFATE [Concomitant]
     Route: 048
  11. LANSOPRAZOLE [Concomitant]
     Route: 048
  12. DESIRUDIN [Concomitant]
     Route: 061
  13. CHLORPROETHAZINE HYDROCHLORIDE [Concomitant]
     Route: 061

REACTIONS (5)
  - ANAEMIA [None]
  - GASTROINTESTINAL DISORDER [None]
  - HAEMATEMESIS [None]
  - MELAENA [None]
  - THROMBOSIS [None]
